FAERS Safety Report 10506650 (Version 1)
Quarter: 2014Q3

REPORT INFORMATION
  Report Type: Spontaneous
  Country: US (occurrence: None)
  Receive Date: 20140915
  Receipt Date: 20140915
  Transmission Date: 20150326
  Serious: Yes (Other)
  Sender: FDA-Public Use
  Company Number: 2013-US-003225

PATIENT
  Age: 38 Year
  Sex: Female

DRUGS (1)
  1. XYREM [Suspect]
     Active Substance: SODIUM OXYBATE
     Indication: NARCOLEPSY
     Route: 048

REACTIONS (5)
  - Drug screen positive [None]
  - Intentional overdose [None]
  - Hallucination, auditory [None]
  - Insomnia [None]
  - Blood potassium decreased [None]

NARRATIVE: CASE EVENT DATE: 2013
